FAERS Safety Report 23864185 (Version 1)
Quarter: 2024Q2

REPORT INFORMATION
  Report Type: Report from Study
  Country: CN (occurrence: CN)
  Receive Date: 20240516
  Receipt Date: 20240516
  Transmission Date: 20240716
  Serious: Yes (Hospitalization)
  Sender: FDA-Public Use
  Company Number: CN-CSTONE PHARMACEUTICALS (SUZHOU) CO., LTD.-2024CN00238

PATIENT

DRUGS (2)
  1. PRALSETINIB [Suspect]
     Active Substance: PRALSETINIB
     Indication: Non-small cell lung cancer
     Dosage: 400 MILLIGRAM, QD
     Route: 048
     Dates: start: 20230308, end: 20230513
  2. PRALSETINIB [Suspect]
     Active Substance: PRALSETINIB
     Dosage: 200 MILLIGRAM, QD
     Route: 048
     Dates: start: 20240327

REACTIONS (4)
  - Fungal foot infection [Recovering/Resolving]
  - Skin exfoliation [Recovering/Resolving]
  - Skin fissures [Recovering/Resolving]
  - Gait inability [Recovering/Resolving]

NARRATIVE: CASE EVENT DATE: 20230513
